FAERS Safety Report 8936733 (Version 3)
Quarter: 2013Q2

REPORT INFORMATION
  Report Type: Spontaneous
  Country: CN (occurrence: CN)
  Receive Date: 20121130
  Receipt Date: 20130427
  Transmission Date: 20140414
  Serious: Yes (Death, Other)
  Sender: FDA-Public Use
  Company Number: CN-PFIZER INC-2012294351

PATIENT
  Age: 74 Year
  Sex: 0

DRUGS (8)
  1. DYNASTAT [Suspect]
     Dosage: 40 MG, SINGLE
     Route: 042
     Dates: start: 20120823, end: 20120823
  2. DYNASTAT [Suspect]
     Dosage: 40 MG, 2X/DAY (ONCE EVERY 12 HOURS)
     Route: 042
     Dates: start: 20120824, end: 20120825
  3. CELEBREX [Suspect]
     Dosage: 200 MG, 1X/DAY
     Route: 048
     Dates: start: 20120822, end: 20120901
  4. KETOROLAC TROMETHAMINE [Concomitant]
     Indication: ANALGESIC THERAPY
     Dosage: ABOUT TWO INJECTIONS IN TOTAL
     Dates: start: 201208, end: 20120828
  5. KETOROLAC TROMETHAMINE [Concomitant]
     Indication: ANTIINFLAMMATORY THERAPY
  6. ASPIRIN ^BAYER^ [Concomitant]
     Indication: ANTICOAGULANT THERAPY
     Dosage: UNK
     Route: 048
     Dates: end: 20120901
  7. TRAMADOL [Concomitant]
     Indication: ANALGESIC THERAPY
     Dosage: UNK
     Dates: end: 20120901
  8. ALUMINIUM HYDROXIDE [Concomitant]
     Indication: PROPHYLAXIS

REACTIONS (6)
  - Gastroduodenal haemorrhage [Recovered/Resolved]
  - Haemoglobin decreased [Recovered/Resolved]
  - Septic shock [Fatal]
  - Sepsis [Unknown]
  - Cardiac failure [Unknown]
  - Liver abscess [Unknown]
